FAERS Safety Report 5047710-3 (Version None)
Quarter: 2006Q2

REPORT INFORMATION
  Report Type: 
  Country: None (occurrence: None)
  Receive Date: 20060601
  Receipt Date: 20060328
  Transmission Date: 20061013
  Serious: No
  Sender: FDA-Public Use
  Company Number: US200602001315

PATIENT
  Sex: Female

DRUGS (1)
  1. CYMBALTA [Suspect]
     Indication: DEPRESSION
     Dosage: SEE IMAGE
     Route: 048
     Dates: start: 20050101

REACTIONS (6)
  - ANXIETY [None]
  - DEPRESSION [None]
  - FLAT AFFECT [None]
  - LETHARGY [None]
  - STRESS [None]
  - SUICIDAL IDEATION [None]
